FAERS Safety Report 5614495-9 (Version None)
Quarter: 2008Q1

REPORT INFORMATION
  Report Type: 
  Country: None (occurrence: None)
  Receive Date: 20080205
  Receipt Date: 20080125
  Transmission Date: 20080703
  Serious: Yes (Other)
  Sender: FDA-Public Use
  Company Number: JP-MERCK-0801USA05815

PATIENT
  Age: 72 Year
  Sex: Female

DRUGS (2)
  1. ZETIA [Suspect]
     Indication: HYPERCHOLESTEROLAEMIA
     Route: 048
     Dates: start: 20080109, end: 20080111
  2. AMLODIPINE BESYLATE [Concomitant]
     Route: 065
     Dates: start: 20051215

REACTIONS (2)
  - DRUG ERUPTION [None]
  - PRURITUS GENERALISED [None]
